FAERS Safety Report 17171066 (Version 1)
Quarter: 2019Q4

REPORT INFORMATION
  Report Type: Spontaneous
  Country: ES (occurrence: ES)
  Receive Date: 20191218
  Receipt Date: 20191218
  Transmission Date: 20200122
  Serious: Yes (Life-Threatening, Hospitalization)
  Sender: FDA-Public Use
  Company Number: ES-ASTRAZENECA-2019SF81162

PATIENT
  Age: 60 Year
  Sex: Female
  Weight: 88 kg

DRUGS (6)
  1. SEROQUEL [Suspect]
     Active Substance: QUETIAPINE FUMARATE
     Indication: MIXED ANXIETY AND DEPRESSIVE DISORDER
     Route: 048
     Dates: start: 20120601
  2. ENALAPRIL MALEATE (2142MA) [Concomitant]
     Indication: HYPERTENSION
     Route: 048
     Dates: start: 20180404
  3. TRYPTIZOL [Concomitant]
     Active Substance: AMITRIPTYLINE HYDROCHLORIDE
     Indication: MIXED ANXIETY AND DEPRESSIVE DISORDER
     Dosage: 100 MG FILM-COATED TABLETS, 60 TABLETS
     Route: 048
     Dates: start: 20140201
  4. LARGACTIL [Suspect]
     Active Substance: CHLORPROMAZINE
     Indication: MIXED ANXIETY AND DEPRESSIVE DISORDER
     Route: 048
     Dates: start: 20150701, end: 20191112
  5. RIVOTRIL [Concomitant]
     Active Substance: CLONAZEPAM
     Indication: MIXED ANXIETY AND DEPRESSIVE DISORDER
     Dosage: 2.5 MG/ML ORAL DROPS IN SOLUTION, 1 BOTTLE OF 10 ML 0.5 MG EVERY EIGHT HOURS
     Route: 048
     Dates: start: 20110701
  6. SIMVASTATIN (1023A) [Concomitant]
     Indication: DYSLIPIDAEMIA
     Route: 048
     Dates: start: 20180301

REACTIONS (1)
  - Pulmonary embolism [Recovered/Resolved]

NARRATIVE: CASE EVENT DATE: 20191112
